FAERS Safety Report 6842229-9 (Version None)
Quarter: 2010Q3

REPORT INFORMATION
  Report Type: 
  Country: None (occurrence: None)
  Receive Date: 20100714
  Receipt Date: 20070723
  Transmission Date: 20110219
  Serious: No
  Sender: FDA-Public Use
  Company Number: US-PFIZER INC-2007062309

PATIENT
  Sex: Male
  Weight: 111.36 kg

DRUGS (14)
  1. CHANTIX [Suspect]
     Indication: SMOKING CESSATION THERAPY
     Dates: start: 20070716
  2. METFORMIN HCL [Concomitant]
  3. ACETYLSALICYLIC ACID [Concomitant]
  4. NIFEDIPINE [Concomitant]
  5. TRICOR [Concomitant]
  6. HYDROCHLOROTHIAZIDE [Concomitant]
  7. TAMSULOSIN HYDROCHLORIDE [Concomitant]
  8. ATENOLOL [Concomitant]
  9. SIMVASTATIN [Concomitant]
  10. LISINOPRIL [Concomitant]
  11. PRILOSEC [Concomitant]
  12. MIRAPEX [Concomitant]
  13. ADVAIR DISKUS 100/50 [Concomitant]
  14. PLAVIX [Concomitant]

REACTIONS (1)
  - FEELING ABNORMAL [None]
